FAERS Safety Report 4794458-6 (Version None)
Quarter: 2005Q4

REPORT INFORMATION
  Report Type: 
  Country: None (occurrence: None)
  Receive Date: 20051011
  Receipt Date: 20050930
  Transmission Date: 20060501
  Serious: Yes (Death, Hospitalization)
  Sender: FDA-Public Use
  Company Number: US-BRISTOL-MYERS SQUIBB COMPANY-13127899

PATIENT
  Age: 96 Year
  Sex: Female
  Weight: 61 kg

DRUGS (3)
  1. COUMADIN [Suspect]
     Indication: CARDIAC PACEMAKER INSERTION
     Dosage: 3MG TO 4 MG DAILY
     Dates: start: 19980101
  2. ASPIRIN [Concomitant]
  3. LANOXIN [Concomitant]

REACTIONS (5)
  - CEREBROVASCULAR ACCIDENT [None]
  - COUGH [None]
  - DEATH [None]
  - PYREXIA [None]
  - RESPIRATORY TRACT CONGESTION [None]
